FAERS Safety Report 14016095 (Version 1)
Quarter: 2017Q3

REPORT INFORMATION
  Report Type: Spontaneous
  Country: US (occurrence: US)
  Receive Date: 20170927
  Receipt Date: 20170927
  Transmission Date: 20171128
  Serious: No
  Sender: FDA-Public Use
  Company Number: US-BRISTOL-MYERS SQUIBB COMPANY-BMS-2017-086267

PATIENT
  Age: 4 Year
  Sex: Male

DRUGS (13)
  1. THIORIDAZINE [Suspect]
     Active Substance: THIORIDAZINE
     Indication: DISRUPTIVE MOOD DYSREGULATION DISORDER
     Dosage: 10 MG, UNK
     Route: 065
  2. QUETIAPINE. [Suspect]
     Active Substance: QUETIAPINE
     Indication: POST-TRAUMATIC STRESS DISORDER
     Route: 065
  3. ABILIFY [Suspect]
     Active Substance: ARIPIPRAZOLE
     Indication: DISRUPTIVE MOOD DYSREGULATION DISORDER
     Dosage: 1 DF, UNK
     Route: 065
  4. ABILIFY [Suspect]
     Active Substance: ARIPIPRAZOLE
     Indication: AFFECTIVE DISORDER
     Route: 065
  5. ABILIFY [Suspect]
     Active Substance: ARIPIPRAZOLE
     Indication: POST-TRAUMATIC STRESS DISORDER
     Route: 065
  6. THIORIDAZINE [Suspect]
     Active Substance: THIORIDAZINE
     Indication: AFFECTIVE DISORDER
     Route: 065
  7. THIORIDAZINE [Suspect]
     Active Substance: THIORIDAZINE
     Indication: POST-TRAUMATIC STRESS DISORDER
     Route: 065
  8. QUETIAPINE. [Suspect]
     Active Substance: QUETIAPINE
     Indication: ANXIETY
     Dosage: 1 DF, UNK
     Route: 065
  9. THIORIDAZINE [Suspect]
     Active Substance: THIORIDAZINE
     Indication: ANXIETY
     Route: 065
  10. ABILIFY [Suspect]
     Active Substance: ARIPIPRAZOLE
     Indication: ANXIETY
     Route: 065
  11. QUETIAPINE. [Suspect]
     Active Substance: QUETIAPINE
     Indication: AFFECTIVE DISORDER
     Route: 065
  12. RISPERIDONE. [Suspect]
     Active Substance: RISPERIDONE
     Indication: PRODUCT USED FOR UNKNOWN INDICATION
     Dosage: 1 DF, UNK
     Route: 065
  13. QUETIAPINE. [Suspect]
     Active Substance: QUETIAPINE
     Indication: DISRUPTIVE MOOD DYSREGULATION DISORDER
     Route: 065

REACTIONS (3)
  - Drug ineffective [Unknown]
  - Drug administered to patient of inappropriate age [Unknown]
  - Product use in unapproved indication [Unknown]
